FAERS Safety Report 23188478 (Version 1)
Quarter: 2023Q4

REPORT INFORMATION
  Report Type: Spontaneous
  Country: PK (occurrence: PK)
  Receive Date: 20231115
  Receipt Date: 20231115
  Transmission Date: 20240109
  Serious: Yes (Other)
  Sender: FDA-Public Use
  Company Number: PK-AMERICAN REGENT INC-2023002646

PATIENT
  Age: 60 Year
  Sex: Male

DRUGS (2)
  1. VENOFER [Suspect]
     Active Substance: IRON SUCROSE
     Indication: End stage renal disease
     Dosage: 100 MILLIGRAM, 1 IN 2 DAYS (3 DOSES)
  2. VENOFER [Suspect]
     Active Substance: IRON SUCROSE
     Indication: Iron deficiency

REACTIONS (1)
  - Thrombocytopenia [Recovering/Resolving]
